FAERS Safety Report 18315013 (Version 1)
Quarter: 2020Q3

REPORT INFORMATION
  Report Type: Report from Study
  Country: None (occurrence: US)
  Receive Date: 20200925
  Receipt Date: 20200925
  Transmission Date: 20201103
  Serious: Yes (Other)
  Sender: FDA-Public Use
  Company Number: US-ABBVIE-20K-163-3555160-00

PATIENT
  Age: 22 Year
  Sex: Female
  Weight: 82.17 kg

DRUGS (1)
  1. HUMIRA [Suspect]
     Active Substance: ADALIMUMAB
     Indication: HIDRADENITIS
     Dosage: CITRATE FREE
     Route: 058
     Dates: start: 201909, end: 202008

REACTIONS (1)
  - Vulvar dysplasia [Not Recovered/Not Resolved]

NARRATIVE: CASE EVENT DATE: 20200623
